FAERS Safety Report 20782671 (Version 1)
Quarter: 2022Q2

REPORT INFORMATION
  Report Type: Spontaneous
  Country: US (occurrence: US)
  Receive Date: 20220504
  Receipt Date: 20220504
  Transmission Date: 20220721
  Serious: Yes (Hospitalization)
  Sender: FDA-Public Use
  Company Number: US-MYLANLABS-2022M1032377

PATIENT
  Age: 48 Year
  Sex: Female

DRUGS (8)
  1. CIPROFLOXACIN [Suspect]
     Active Substance: CIPROFLOXACIN
     Indication: Perichondritis
     Dosage: UNK
     Route: 048
  2. LEVOFLOXACIN [Suspect]
     Active Substance: LEVOFLOXACIN
     Indication: Perichondritis
     Dosage: UNK
     Route: 048
  3. PREDNISONE [Suspect]
     Active Substance: PREDNISONE
     Indication: Perichondritis
     Dosage: UNK (HIGH DOSE)
     Route: 065
  4. MINOCYCLINE [Suspect]
     Active Substance: MINOCYCLINE HYDROCHLORIDE
     Indication: Perichondritis
     Dosage: UNK
     Route: 065
  5. DEXAMETHASONE [Suspect]
     Active Substance: DEXAMETHASONE
     Indication: Perichondritis
     Dosage: UNK
     Route: 065
  6. AMOXICILLIN [Suspect]
     Active Substance: AMOXICILLIN
     Indication: Perichondritis
     Dosage: UNK
     Route: 048
  7. AMOXICILLIN\CLAVULANIC ACID [Suspect]
     Active Substance: AMOXICILLIN\CLAVULANIC ACID
     Indication: Perichondritis
     Dosage: UNK
     Route: 048
  8. AMOXICILLIN\CLAVULANIC ACID [Suspect]
     Active Substance: AMOXICILLIN\CLAVULANIC ACID
     Indication: Perichondritis
     Dosage: UNK (ANOTHER 4-WEEK COURSE))
     Route: 065

REACTIONS (1)
  - Drug ineffective [Unknown]
